FAERS Safety Report 16136844 (Version 2)
Quarter: 2019Q2

REPORT INFORMATION
  Report Type: Spontaneous
  Country: US (occurrence: US)
  Receive Date: 20190329
  Receipt Date: 20190502
  Transmission Date: 20190711
  Serious: Yes (Other)
  Sender: FDA-Public Use
  Company Number: PHEH2019US012885

PATIENT
  Sex: Male

DRUGS (1)
  1. RIVASTIGMINE. [Suspect]
     Active Substance: RIVASTIGMINE
     Indication: DEMENTIA
     Dosage: UNK (SINCE 4 TO 5 YEARS)
     Route: 065

REACTIONS (3)
  - Product adhesion issue [Unknown]
  - Rash [Unknown]
  - Cerebrovascular accident [Unknown]
